FAERS Safety Report 5700306-X (Version None)
Quarter: 2008Q2

REPORT INFORMATION
  Report Type: 
  Country: None (occurrence: None)
  Receive Date: 20080410
  Receipt Date: 20080404
  Transmission Date: 20081010
  Serious: Yes (Hospitalization, Disabling)
  Sender: FDA-Public Use
  Company Number: B0457480A

PATIENT
  Age: 43 Year
  Sex: Female
  Weight: 69 kg

DRUGS (1)
  1. IMIGRAN [Suspect]
     Indication: MIGRAINE
     Dosage: 50MG PER DAY
     Route: 048
     Dates: start: 20040201, end: 20070117

REACTIONS (3)
  - BLINDNESS [None]
  - CEREBRAL INFARCTION [None]
  - HEMIANOPIA HOMONYMOUS [None]
